FAERS Safety Report 18650697 (Version 1)
Quarter: 2020Q4

REPORT INFORMATION
  Report Type: Spontaneous
  Country: CA (occurrence: CA)
  Receive Date: 20201222
  Receipt Date: 20201222
  Transmission Date: 20210114
  Serious: Yes (Other)
  Sender: FDA-Public Use
  Company Number: US-ALLERGAN-2044011US

PATIENT
  Sex: Female

DRUGS (2)
  1. REFRESH OPTIVE [Concomitant]
     Active Substance: CARBOXYMETHYLCELLULOSE SODIUM\GLYCERIN
  2. RESTASIS [Suspect]
     Active Substance: CYCLOSPORINE
     Indication: DRY EYE
     Dosage: 2-3 DROPS TO EACH EYE TWICE A DAY
     Route: 047
     Dates: start: 2017

REACTIONS (6)
  - Incorrect dose administered [Unknown]
  - Eye disorder [Recovered/Resolved]
  - Eye injury [Recovered/Resolved]
  - Product container issue [Unknown]
  - Eye haemorrhage [Recovered/Resolved]
  - Product package associated injury [Recovered/Resolved]

NARRATIVE: CASE EVENT DATE: 202011
